FAERS Safety Report 7273714-6 (Version None)
Quarter: 2011Q1

REPORT INFORMATION
  Report Type: 
  Country: None (occurrence: None)
  Receive Date: 20110203
  Receipt Date: 20110128
  Transmission Date: 20110831
  Serious: Yes (Other)
  Sender: FDA-Public Use
  Company Number: IE-PFIZER INC-2010130527

PATIENT
  Age: 52 Year
  Sex: Male

DRUGS (6)
  1. NEURONTIN [Suspect]
     Dosage: 300 MG, 3X/DAY
     Route: 048
     Dates: start: 20091116
  2. PONSTAN [Concomitant]
  3. NEURONTIN [Suspect]
     Dosage: 300 MG, UNK
     Route: 048
     Dates: start: 20091110, end: 20091112
  4. LIPITOR [Concomitant]
  5. MAXOLON [Concomitant]
  6. NEURONTIN [Suspect]
     Dosage: 300 MG, 2X/DAY
     Route: 048
     Dates: start: 20091113, end: 20091115

REACTIONS (4)
  - VISION BLURRED [None]
  - EYE SWELLING [None]
  - ACCIDENT [None]
  - DIZZINESS [None]
